FAERS Safety Report 8175355-5 (Version None)
Quarter: 2012Q1

REPORT INFORMATION
  Report Type: 
  Country: None (occurrence: None)
  Receive Date: 20120229
  Receipt Date: 20120227
  Transmission Date: 20120608
  Serious: Yes (Other)
  Sender: FDA-Public Use
  Company Number: US-PFIZER INC-2012036202

PATIENT
  Sex: Female
  Weight: 58.05 kg

DRUGS (6)
  1. PRISTIQ [Suspect]
     Indication: DEPRESSION
     Dosage: 100 MG, 1X/DAY
     Route: 048
     Dates: start: 20110101
  2. AMITRIPTYLINE [Concomitant]
     Dosage: 50 UNK, 1X/DAY
  3. CLONAZEPAM [Concomitant]
     Dosage: 0.5 UNK, 2X/DAY
  4. LORATADINE [Concomitant]
     Dosage: 10 UNK, 1X/DAY
  5. PRISTIQ [Suspect]
     Dosage: 50 MG (FREQUENCY UNKNOWN)
     Dates: end: 20120101
  6. ALBUTEROL [Concomitant]
     Dosage: UNK

REACTIONS (1)
  - CATARACT [None]
